FAERS Safety Report 23065996 (Version 1)
Quarter: 2023Q4

REPORT INFORMATION
  Report Type: Spontaneous
  Country: US (occurrence: US)
  Receive Date: 20231014
  Receipt Date: 20231014
  Transmission Date: 20240110
  Serious: Yes (Other)
  Sender: FDA-Public Use
  Company Number: US-CPL-003700

PATIENT
  Age: 22 Year

DRUGS (6)
  1. BUPROPION [Interacting]
     Active Substance: BUPROPION
     Indication: Mood altered
     Dosage: 300 MG DAILY
     Route: 065
  2. DULOXETINE [Interacting]
     Active Substance: DULOXETINE
     Indication: Product used for unknown indication
     Dosage: 40 MG TWICE A DAY
     Route: 065
  3. GABAPENTIN [Interacting]
     Active Substance: GABAPENTIN
     Indication: Headache
     Dosage: 100 MG THREE TIMES A DAY
     Dates: start: 20220112
  4. AMANTADINE [Interacting]
     Active Substance: AMANTADINE
     Indication: Post-traumatic headache
     Dates: start: 20220405
  5. BUPROPION [Interacting]
     Active Substance: BUPROPION
     Indication: Mood altered
     Dosage: 450 MG DAILY
     Route: 065
  6. GABAPENTIN [Interacting]
     Active Substance: GABAPENTIN
     Indication: Headache
     Dosage: 300 MG THREE TIMES A DAY
     Dates: start: 20220210

REACTIONS (2)
  - Drug interaction [Unknown]
  - Serotonin syndrome [Recovering/Resolving]

NARRATIVE: CASE EVENT DATE: 20220415
